FAERS Safety Report 12269654 (Version 1)
Quarter: 2016Q2

REPORT INFORMATION
  Report Type: Report from Study
  Country: US (occurrence: US)
  Receive Date: 20160414
  Receipt Date: 20160414
  Transmission Date: 20160815
  Serious: Yes (Other)
  Sender: FDA-Public Use
  Company Number: US-BIOGEN-2014BI105147

PATIENT
  Age: 50 Year
  Sex: Female

DRUGS (5)
  1. TYSABRI [Suspect]
     Active Substance: NATALIZUMAB
     Indication: MULTIPLE SCLEROSIS
     Route: 042
     Dates: start: 20141003, end: 20150223
  2. SOLU-MEDROL [Concomitant]
     Active Substance: METHYLPREDNISOLONE SODIUM SUCCINATE
     Indication: PREMEDICATION
     Route: 065
     Dates: start: 20150223, end: 20150223
  3. BENADRYL [Concomitant]
     Active Substance: DIPHENHYDRAMINE HYDROCHLORIDE
     Indication: ALLERGY PROPHYLAXIS
  4. BENADRYL [Concomitant]
     Active Substance: DIPHENHYDRAMINE HYDROCHLORIDE
     Indication: PREMEDICATION
     Route: 065
     Dates: start: 20150223, end: 20150223
  5. SOLU-MEDROL [Concomitant]
     Active Substance: METHYLPREDNISOLONE SODIUM SUCCINATE
     Indication: ALLERGY PROPHYLAXIS

REACTIONS (17)
  - Peripheral swelling [Recovered/Resolved]
  - Motion sickness [Not Recovered/Not Resolved]
  - Dysphagia [Recovered/Resolved]
  - Muscle spasms [Not Recovered/Not Resolved]
  - Skin wrinkling [Unknown]
  - Joint dislocation [Not Recovered/Not Resolved]
  - Dysphonia [Recovered/Resolved]
  - Headache [Not Recovered/Not Resolved]
  - Heart rate increased [Recovered/Resolved]
  - Feeling abnormal [Not Recovered/Not Resolved]
  - Hypertension [Not Recovered/Not Resolved]
  - Anaphylactic reaction [Recovered/Resolved]
  - Blood pressure increased [Recovered/Resolved]
  - Toothache [Not Recovered/Not Resolved]
  - Nausea [Not Recovered/Not Resolved]
  - Arthralgia [Not Recovered/Not Resolved]
  - Underdose [Recovered/Resolved]

NARRATIVE: CASE EVENT DATE: 20141003
